FAERS Safety Report 13477673 (Version 6)
Quarter: 2018Q1

REPORT INFORMATION
  Report Type: Report from Study
  Country: US (occurrence: US)
  Receive Date: 20170424
  Receipt Date: 20180125
  Transmission Date: 20180508
  Serious: No
  Sender: FDA-Public Use
  Company Number: US-AMGEN-USASL2017025777

PATIENT
  Age: 50 Year
  Sex: Male

DRUGS (2)
  1. REPATHA [Suspect]
     Active Substance: EVOLOCUMAB
     Indication: HYPERCHOLESTEROLAEMIA
     Dosage: 140 MG, Q2WK
     Route: 065
  2. REPATHA [Suspect]
     Active Substance: EVOLOCUMAB
     Dosage: UNK
     Route: 065

REACTIONS (8)
  - Weight decreased [Unknown]
  - Hepatic enzyme increased [Unknown]
  - Injection site pain [Unknown]
  - Blood glucose increased [Unknown]
  - Blood uric acid increased [Unknown]
  - Bone pain [Unknown]
  - Hypertension [Unknown]
  - Metabolic syndrome [Unknown]
